FAERS Safety Report 8375541-5 (Version None)
Quarter: 2012Q1

REPORT INFORMATION
  Report Type: 
  Country: None (occurrence: None)
  Receive Date: 20120323
  Receipt Date: 20110418
  Transmission Date: 20120608
  Serious: Yes (Hospitalization, Other)
  Sender: FDA-Public Use
  Company Number: 163-21880-11021184

PATIENT
  Age: 91 Year
  Sex: Female

DRUGS (3)
  1. FLUIDS (PARENTERAL) [Concomitant]
  2. REVLIMID [Suspect]
     Indication: MULTIPLE MYELOMA
     Dosage: 5 MG, 1 IN 1 D, PO, 10 MG, 1 IN 1 D, PO
     Route: 048
     Dates: start: 20100913
  3. REVLIMID [Suspect]
     Indication: MULTIPLE MYELOMA
     Dosage: 5 MG, 1 IN 1 D, PO, 10 MG, 1 IN 1 D, PO
     Route: 048
     Dates: start: 20101001, end: 20110206

REACTIONS (5)
  - PLATELET COUNT DECREASED [None]
  - THROMBOSIS [None]
  - PERFORMANCE STATUS DECREASED [None]
  - DEEP VEIN THROMBOSIS [None]
  - DEHYDRATION [None]
